FAERS Safety Report 12566771 (Version 2)
Quarter: 2016Q3

REPORT INFORMATION
  Report Type: Spontaneous
  Country: US (occurrence: US)
  Receive Date: 20160718
  Receipt Date: 20160808
  Transmission Date: 20161109
  Serious: Yes (Other)
  Sender: FDA-Public Use
  Company Number: US-SMITH AND NEPHEW, INC-2016SMT00560

PATIENT
  Age: 53 Year
  Sex: Female
  Weight: 77.55 kg

DRUGS (15)
  1. REGRANEX [Suspect]
     Active Substance: BECAPLERMIN
     Indication: DIABETIC ULCER
     Dosage: UNK UNK, 1X/DAY
     Route: 061
     Dates: start: 201605, end: 20160629
  2. REGRANEX [Suspect]
     Active Substance: BECAPLERMIN
     Dosage: UNK
     Route: 061
     Dates: start: 20160630
  3. LANTUS SOLOSTAR [Concomitant]
     Active Substance: INSULIN GLARGINE
     Dosage: 52 U, 1X/DAY
  4. SEVELAMER HYDROCHLORIDE [Concomitant]
     Active Substance: SEVELAMER HYDROCHLORIDE
     Dosage: 1600 MG, 3X/DAY
     Route: 048
  5. CALCITRIOL. [Concomitant]
     Active Substance: CALCITRIOL
     Dosage: 0.25 ?G, 1X/DAY
     Route: 048
  6. HUMALOG MIX 75/25 KWIKPEN [Concomitant]
     Dosage: 6 U, 3X/DAY
     Route: 058
  7. ACETAMINOPEHN-CODEINE [Concomitant]
     Dosage: 1 TABLETS, 2X/DAY
     Route: 048
  8. SIMVASTATIN. [Concomitant]
     Active Substance: SIMVASTATIN
     Dosage: 20 MG, 1X/DAY
     Route: 048
  9. ASPIRIN. [Concomitant]
     Active Substance: ASPIRIN
     Dosage: 81 MG, 1X/DAY
     Route: 048
  10. HYDRALAZINE [Concomitant]
     Active Substance: HYDRALAZINE HYDROCHLORIDE
     Dosage: 50 MG, 3X/DAY
     Route: 048
  11. NITROGLYCERIN ER [Concomitant]
     Active Substance: NITROGLYCERIN
     Dosage: UNK, 1X/DAY
     Route: 062
  12. CLONIDINE. [Concomitant]
     Active Substance: CLONIDINE
     Dosage: 0.3 MG, 2X/DAY
     Route: 048
  13. OMEPRAZOLE DR [Concomitant]
     Active Substance: OMEPRAZOLE
     Dosage: 20 MG, 1X/DAY
     Route: 048
  14. NIFEDIPINE. [Concomitant]
     Active Substance: NIFEDIPINE
     Dosage: 60 MG, 1X/DAY
     Route: 048
  15. FUROSEMIDE. [Concomitant]
     Active Substance: FUROSEMIDE
     Dosage: 40 MG, 1X/DAY
     Route: 048

REACTIONS (4)
  - Tracheostomy [Unknown]
  - Toe amputation [Recovered/Resolved]
  - Angioplasty [Unknown]
  - Gangrene [Unknown]

NARRATIVE: CASE EVENT DATE: 20160513
